FAERS Safety Report 6123729-6 (Version None)
Quarter: 2009Q1

REPORT INFORMATION
  Report Type: 
  Country: None (occurrence: None)
  Receive Date: 20090318
  Receipt Date: 20090318
  Transmission Date: 20090719
  Serious: Yes (Hospitalization)
  Sender: FDA-Public Use
  Company Number: None

PATIENT
  Sex: Female
  Weight: 52.5 kg

DRUGS (3)
  1. CYTARABINE [Suspect]
     Dosage: 11270 MG
  2. GEMTUZUMAB OZOGAMICIN [Suspect]
     Dosage: 4.2 MG
  3. MITOXANTRONE HYDROCHLORIDE [Suspect]
     Dosage: 68 MG

REACTIONS (13)
  - ALANINE AMINOTRANSFERASE ABNORMAL [None]
  - ALPHA HAEMOLYTIC STREPTOCOCCAL INFECTION [None]
  - ASPARTATE AMINOTRANSFERASE ABNORMAL [None]
  - ATELECTASIS [None]
  - BLOOD CULTURE POSITIVE [None]
  - HYPOTENSION [None]
  - LUNG INFILTRATION [None]
  - MENTAL STATUS CHANGES [None]
  - NEUTROPENIA [None]
  - PLEURAL EFFUSION [None]
  - PULMONARY OEDEMA [None]
  - RESPIRATORY DISTRESS [None]
  - SEPSIS [None]
